FAERS Safety Report 15255986 (Version 6)
Quarter: 2019Q1

REPORT INFORMATION
  Report Type: Report from Study
  Country: ZA (occurrence: ZA)
  Receive Date: 20180808
  Receipt Date: 20190215
  Transmission Date: 20190417
  Serious: Yes (Life-Threatening, Hospitalization, Disabling)
  Sender: FDA-Public Use
  Company Number: ZA-SA-2018SA212227

PATIENT
  Age: 69 Year
  Sex: Female

DRUGS (11)
  1. INSULIN GLARGINE [Suspect]
     Active Substance: INSULIN GLARGINE
     Dosage: 34 U, QD
     Dates: start: 20180821
  2. CARDIOMAX [ROSUVASTATIN CALCIUM] [Concomitant]
     Dosage: 150 MG, QD (BEFORE BREAKFAST)
     Dates: start: 20180712
  3. HUMALOG [Concomitant]
     Active Substance: INSULIN LISPRO
     Dosage: 16 U, TID (BEFORE SUPPER, BEFORE LUNCH AND BEFORE BREAKFAST)
     Dates: start: 20150712
  4. ZARTAN CO [Concomitant]
     Active Substance: HYDROCHLOROTHIAZIDE\LOSARTAN POTASSIUM
     Dosage: 100 MG, QD (BEFORE BREAKFAST)
     Dates: start: 20180712
  5. PIOGLITAZONE. [Concomitant]
     Active Substance: PIOGLITAZONE
     Dosage: 150 MG, QD (BEFORE BREAKFAST)
     Dates: start: 20150712
  6. PURICOS [Concomitant]
     Active Substance: ALLOPURINOL
     Dosage: 100 MG, QD (BEFORE BREAKFAST)
  7. ADCO ZILDEM [Concomitant]
     Active Substance: DILTIAZEM HYDROCHLORIDE
     Dosage: 240 MG, QD (BEFORE BREAKFAST)
     Dates: start: 20180712
  8. LASIX [Concomitant]
     Active Substance: FUROSEMIDE
     Dosage: 80 MG, QD (BEFORE BREAKFAST)
     Dates: start: 20180927
  9. OPTISULIN (INSULIN GLARGINE) [Suspect]
     Active Substance: INSULIN GLARGINE
     Indication: TYPE 2 DIABETES MELLITUS
     Dosage: 43 IU
     Dates: start: 20180927
  10. OPTISULIN (INSULIN GLARGINE) [Suspect]
     Active Substance: INSULIN GLARGINE
     Dosage: 42 U, HS (AT BEDTIME)
     Dates: start: 20180927
  11. INSULIN GLARGINE [Suspect]
     Active Substance: INSULIN GLARGINE
     Indication: TYPE 2 DIABETES MELLITUS
     Dosage: 34 U, HS
     Dates: start: 20170701

REACTIONS (17)
  - Cardiac failure [Unknown]
  - Abdominal pain upper [Not Recovered/Not Resolved]
  - Glycosylated haemoglobin increased [Unknown]
  - Drug ineffective [Unknown]
  - Hyperhidrosis [Recovered/Resolved]
  - Swelling [Not Recovered/Not Resolved]
  - Bladder disorder [Not Recovered/Not Resolved]
  - Fluid overload [Not Recovered/Not Resolved]
  - Discharge [Recovered/Resolved]
  - Dyspnoea [Not Recovered/Not Resolved]
  - Gout [Not Recovered/Not Resolved]
  - Malaise [Recovered/Resolved]
  - Vomiting [Not Recovered/Not Resolved]
  - Injection site bruising [Not Recovered/Not Resolved]
  - Pain [Not Recovered/Not Resolved]
  - Nausea [Not Recovered/Not Resolved]
  - Hypoglycaemia [Recovered/Resolved]

NARRATIVE: CASE EVENT DATE: 20180716
